FAERS Safety Report 5144498-2 (Version None)
Quarter: 2006Q4

REPORT INFORMATION
  Report Type: 
  Country: None (occurrence: None)
  Receive Date: 20061106
  Receipt Date: 20060906
  Transmission Date: 20070319
  Serious: Yes (Life-Threatening, Hospitalization, Disabling, Other)
  Sender: FDA-Public Use
  Company Number: US-BOEHRINGER INGELHEIM PHARMACEUTICALS, INC.-2006-BP-10508BP

PATIENT
  Age: 57 Year
  Sex: Male

DRUGS (4)
  1. AGGRENOX [Suspect]
     Indication: TRANSIENT ISCHAEMIC ATTACK
     Route: 048
     Dates: end: 20060901
  2. NEXIUM [Concomitant]
  3. ALTACE [Concomitant]
  4. VYTORIN [Concomitant]

REACTIONS (8)
  - CEREBRAL HAEMATOMA [None]
  - CEREBRAL HAEMORRHAGE [None]
  - ENDARTERECTOMY [None]
  - HAEMORRHAGIC STROKE [None]
  - HEMIPARESIS [None]
  - HEMIPLEGIA [None]
  - LETHARGY [None]
  - SUBDURAL HYGROMA [None]
